FAERS Safety Report 8698039 (Version 3)
Quarter: 2013Q4

REPORT INFORMATION
  Report Type: Spontaneous
  Country: US (occurrence: US)
  Receive Date: 20120802
  Receipt Date: 20131101
  Transmission Date: 20140711
  Serious: Yes (Other)
  Sender: FDA-Public Use
  Company Number: US-009507513-1207USA010478

PATIENT
  Sex: Female
  Weight: 97.52 kg

DRUGS (3)
  1. JANUMET [Suspect]
     Indication: BLOOD GLUCOSE INCREASED
     Dosage: 50/500MG, BID
     Route: 048
     Dates: start: 20120224, end: 20120226
  2. JANUMET [Suspect]
     Indication: DIABETES MELLITUS
  3. COZAAR [Concomitant]
     Indication: HYPERTENSION
     Dosage: 100 MG, QD
     Route: 048

REACTIONS (1)
  - Angioedema [Recovered/Resolved]
